FAERS Safety Report 7300768-0 (Version None)
Quarter: 2011Q1

REPORT INFORMATION
  Report Type: 
  Country: None (occurrence: None)
  Receive Date: 20110103
  Receipt Date: 20091008
  Transmission Date: 20110831
  Serious: Yes (Hospitalization)
  Sender: FDA-Public Use
  Company Number: US-003534

PATIENT
  Sex: Female

DRUGS (2)
  1. MULTIHANCE [Suspect]
     Indication: INJECTION
     Dosage: 7ML ONCE EPIDURAL
     Route: 008
     Dates: start: 20091007, end: 20091007
  2. MULTIHANCE [Suspect]
     Indication: BACK PAIN
     Dosage: 7ML ONCE EPIDURAL
     Route: 008
     Dates: start: 20091007, end: 20091007

REACTIONS (2)
  - SOMNOLENCE [None]
  - CONVULSION [None]
